FAERS Safety Report 5108035-0 (Version None)
Quarter: 2006Q3

REPORT INFORMATION
  Report Type: 
  Country: None (occurrence: None)
  Receive Date: 20060919
  Receipt Date: 20060712
  Transmission Date: 20061208
  Serious: Yes (Disabling)
  Sender: FDA-Public Use
  Company Number: PHEH2006US09010

PATIENT
  Age: 51 Year
  Sex: Male
  Weight: 101.13 kg

DRUGS (10)
  1. GLEEVEC [Suspect]
     Indication: CHRONIC MYELOID LEUKAEMIA
     Dosage: 400 MG, QD
     Route: 048
     Dates: start: 20060201
  2. NIASPAN [Concomitant]
     Dosage: 500 MG, QD
     Route: 048
  3. FOSAMAX ONCE WEEKLY [Concomitant]
     Dosage: 70 MG, QW
     Route: 048
  4. SYNTHROID [Concomitant]
     Dosage: 0.137 MG, QD
     Route: 048
  5. DIOVAN [Concomitant]
     Dosage: 160 MG, QD
     Route: 048
  6. IBUPROFEN [Concomitant]
     Dosage: 800 MG, TID
     Route: 048
  7. METFORMIN HCL [Concomitant]
     Dosage: 500 MG, QD
     Route: 048
  8. VYTORIN [Concomitant]
     Dosage: UNK DF, QD
     Route: 048
  9. CALCIUM WITH VITAMIN D [Concomitant]
     Dosage: 600 MG, QD
     Route: 048
  10. GLUCOSAMINE SULFATE W/CHONDROITIN [Concomitant]
     Route: 048

REACTIONS (4)
  - ANTINUCLEAR ANTIBODY POSITIVE [None]
  - GENITAL ULCERATION [None]
  - MOUTH ULCERATION [None]
  - RHEUMATOID ARTHRITIS [None]
